FAERS Safety Report 24248674 (Version 1)
Quarter: 2024Q3

REPORT INFORMATION
  Report Type: Spontaneous
  Country: US (occurrence: US)
  Receive Date: 20240826
  Receipt Date: 20240826
  Transmission Date: 20241016
  Serious: Yes (Other)
  Sender: BAYER
  Company Number: US-BAYER-2024A120793

PATIENT
  Age: 74 Year
  Sex: Female

DRUGS (2)
  1. ASPIRIN [Suspect]
     Active Substance: ASPIRIN
  2. IBRANCE [Concomitant]
     Active Substance: PALBOCICLIB
     Dosage: 1 TAB PO DAILY D1-21

REACTIONS (1)
  - Haemorrhage [None]
